FAERS Safety Report 20307437 (Version 1)
Quarter: 2022Q1

REPORT INFORMATION
  Report Type: Spontaneous
  Country: US (occurrence: US)
  Receive Date: 20220107
  Receipt Date: 20220107
  Transmission Date: 20220423
  Serious: No
  Sender: FDA-Public Use
  Company Number: US-JNJFOC-20220103150

PATIENT
  Age: 35 Year
  Sex: Male
  Weight: 84.898 kg

DRUGS (2)
  1. SPRAVATO [Suspect]
     Active Substance: ESKETAMINE
     Indication: Major depression
     Dates: start: 20201026
  2. SPRAVATO [Suspect]
     Active Substance: ESKETAMINE
     Dosage: 3EACH NOSTRIL.
     Dates: start: 20211222, end: 20211222

REACTIONS (2)
  - Nausea [Recovered/Resolved]
  - Confusional state [Recovered/Resolved]

NARRATIVE: CASE EVENT DATE: 20211222
